FAERS Safety Report 8538515-7 (Version None)
Quarter: 2012Q3

REPORT INFORMATION
  Report Type: 
  Country: None (occurrence: None)
  Receive Date: 20120726
  Receipt Date: 20120705
  Transmission Date: 20120928
  Serious: No
  Sender: FDA-Public Use
  Company Number: US-009507513-2012SP034074

PATIENT

DRUGS (2)
  1. PEG-INTRON [Suspect]
     Indication: HEPATITIS C
     Dosage: 1 DF, UNK
     Route: 058
     Dates: start: 20120101
  2. REBETOL [Suspect]

REACTIONS (2)
  - PYREXIA [None]
  - HEADACHE [None]
